FAERS Safety Report 6920385-1 (Version None)
Quarter: 2010Q3

REPORT INFORMATION
  Report Type: 
  Country: None (occurrence: None)
  Receive Date: 20100804
  Receipt Date: 20100224
  Transmission Date: 20110219
  Serious: No
  Sender: FDA-Public Use
  Company Number: 2010-0651

PATIENT
  Age: 56 Year
  Sex: Male
  Weight: 104 kg

DRUGS (10)
  1. SOMATULINE DEPOT [Suspect]
     Dosage: 90MG (90 MG,1 IN 28 D), SUBCUTANEOUS
     Route: 058
     Dates: start: 20091101
  2. OMEPRAZOLE [Concomitant]
  3. RISPERDAL (REISPERIDONE) [Concomitant]
  4. RELAFEN [Concomitant]
  5. MORPHINE (MORPINE) [Concomitant]
  6. ATENOLOL [Concomitant]
  7. LUVOX [Concomitant]
  8. AMITRIPTYLINE HYDROCHLORIDE [Concomitant]
  9. GABAPENTIN [Concomitant]
  10. LEVOTHYROXINE SODIUM [Concomitant]

REACTIONS (2)
  - INJECTION SITE HAEMORRHAGE [None]
  - INJECTION SITE PAIN [None]
